FAERS Safety Report 4509567-6 (Version None)
Quarter: 2004Q4

REPORT INFORMATION
  Report Type: 
  Country: None (occurrence: None)
  Receive Date: 20041119
  Receipt Date: 20041111
  Transmission Date: 20050328
  Serious: Yes (Death)
  Sender: FDA-Public Use
  Company Number: USA-2004-0017619

PATIENT
  Age: 45 Year
  Sex: Male

DRUGS (3)
  1. OXYCONTIN [Suspect]
     Dosage: Q8H
  2. MORPHINE SULFATE [Concomitant]
  3. DARVOCET [Concomitant]

REACTIONS (4)
  - FEELING ABNORMAL [None]
  - HAEMATEMESIS [None]
  - OBESITY [None]
  - RESPIRATORY ARREST [None]
